FAERS Safety Report 4280073-X (Version None)
Quarter: 2004Q1

REPORT INFORMATION
  Report Type: 
  Country: None (occurrence: None)
  Receive Date: 20040123
  Receipt Date: 20040115
  Transmission Date: 20041129
  Serious: Yes (Death, Other)
  Sender: FDA-Public Use
  Company Number: 2003-11-1126

PATIENT
  Age: 48 Year
  Sex: Female

DRUGS (3)
  1. GENTAMICIN [Suspect]
     Indication: GRAFT INFECTION
     Dosage: 80 MG X 5 DOSE INTRAMUSCULAR
     Route: 030
  2. GENTAMICIN CREAM [Suspect]
     Indication: GRAFT INFECTION
     Dosage: TOP -DERM
  3. CLOXACILLIN SODIUM [Concomitant]

REACTIONS (21)
  - ATAXIA [None]
  - BLOOD CREATININE INCREASED [None]
  - BRONCHOPNEUMONIA [None]
  - CARDIAC ARREST [None]
  - CONDITION AGGRAVATED [None]
  - DEAFNESS [None]
  - ENTEROBACTER INFECTION [None]
  - HYPERKALAEMIA [None]
  - OTOSCLEROSIS [None]
  - OTOTOXICITY [None]
  - PERITONEAL DIALYSIS [None]
  - PULMONARY OEDEMA [None]
  - RENAL OSTEODYSTROPHY [None]
  - SEPSIS [None]
  - SHUNT INFECTION [None]
  - STAPHYLOCOCCAL INFECTION [None]
  - TINNITUS [None]
  - TRANSPLANT REJECTION [None]
  - VENTRICULAR HYPERTROPHY [None]
  - VERTIGO [None]
  - VESTIBULAR DISORDER [None]
